FAERS Safety Report 5944527-X (Version None)
Quarter: 2008Q4

REPORT INFORMATION
  Report Type: 
  Country: None (occurrence: None)
  Receive Date: 20081104
  Receipt Date: 20081026
  Transmission Date: 20090506
  Serious: Yes (Other)
  Sender: FDA-Public Use
  Company Number: 08H-008-0315115-00

PATIENT
  Age: 34 Year
  Sex: Female
  Weight: 90 kg

DRUGS (8)
  1. PENTOTHAL [Suspect]
     Indication: INDUCTION OF ANAESTHESIA
     Dosage: 3.3 MG/KG,
  2. REMIFENTANIL (REMIFENTANIL) [Suspect]
     Indication: INDUCTION OF ANAESTHESIA
     Dosage: 50 MCG,
  3. REMIFENTANIL (REMIFENTANIL) [Suspect]
     Indication: MAINTENANCE OF ANAESTHESIA
     Dosage: 50 MCG,
  4. SUXAMETHONIUM (SUXAMETHONIUM) [Suspect]
     Indication: INDUCTION OF ANAESTHESIA
  5. ATRACURIUM BESYLATE [Concomitant]
  6. 0.2% ISOFLURANE (ISOFLURANE) [Concomitant]
  7. 50% NITROUS OXIDE (NITROUS OXIDE) [Concomitant]
  8. MORPHINE [Concomitant]

REACTIONS (5)
  - ANAESTHETIC COMPLICATION [None]
  - CAESAREAN SECTION [None]
  - DRUG EXPOSURE DURING PREGNANCY [None]
  - PROCEDURAL PAIN [None]
  - UNWANTED AWARENESS DURING ANAESTHESIA [None]
